FAERS Safety Report 6301301-2 (Version None)
Quarter: 2009Q3

REPORT INFORMATION
  Report Type: 
  Country: None (occurrence: None)
  Receive Date: 20090805
  Receipt Date: 20090805
  Transmission Date: 20100115
  Serious: Yes (Life-Threatening)
  Sender: FDA-Public Use
  Company Number: None

PATIENT
  Age: 85 Year
  Sex: Male

DRUGS (1)
  1. DILAUDID [Suspect]
     Dosage: 1MG PRN IV BOLUS
     Route: 040
     Dates: start: 20090609, end: 20090609

REACTIONS (1)
  - RESPIRATORY ARREST [None]
